FAERS Safety Report 5049445-X (Version None)
Quarter: 2006Q3

REPORT INFORMATION
  Report Type: 
  Country: None (occurrence: None)
  Receive Date: 20060712
  Receipt Date: 20060706
  Transmission Date: 20061208
  Serious: Yes (Hospitalization)
  Sender: FDA-Public Use
  Company Number: AU-ROCHE-454161

PATIENT
  Age: 49 Year
  Sex: Male
  Weight: 94 kg

DRUGS (8)
  1. MYCOPHENOLATE MOFETIL [Suspect]
     Route: 048
     Dates: start: 20051004
  2. PREDNISOLONE [Suspect]
     Route: 048
     Dates: start: 20051007
  3. VALTREX [Suspect]
     Route: 048
     Dates: start: 20051008
  4. TACROLIMUS [Concomitant]
     Dates: start: 20051004, end: 20051011
  5. BACTRIM DS [Concomitant]
     Indication: PROPHYLAXIS
  6. ATENOLOL [Concomitant]
  7. SIMVASTATIN [Concomitant]
     Indication: METABOLIC DISORDER
  8. SOMAC [Concomitant]
     Indication: OESOPHAGEAL DISORDER

REACTIONS (3)
  - CATARACT [None]
  - GLAUCOMA [None]
  - RETINAL OEDEMA [None]
